FAERS Safety Report 5375992-7 (Version None)
Quarter: 2007Q2

REPORT INFORMATION
  Report Type: 
  Country: None (occurrence: None)
  Receive Date: 20070627
  Receipt Date: 20070627
  Transmission Date: 20071010
  Serious: No
  Sender: FDA-Public Use
  Company Number: None

PATIENT
  Age: 47 Year
  Sex: Female

DRUGS (3)
  1. BACTRIM DS [Suspect]
     Dates: start: 20060314, end: 20060321
  2. CALCIUM CHLORIDE [Concomitant]
  3. ASCORBIC ACID [Concomitant]

REACTIONS (10)
  - ABDOMINAL DISCOMFORT [None]
  - ALANINE AMINOTRANSFERASE INCREASED [None]
  - ASPARTATE AMINOTRANSFERASE INCREASED [None]
  - CHOLESTASIS [None]
  - CHROMATURIA [None]
  - FATIGUE [None]
  - HEPATIC ENZYME INCREASED [None]
  - LIVER DISORDER [None]
  - PRURITUS [None]
  - WEIGHT DECREASED [None]
